FAERS Safety Report 10548279 (Version 1)
Quarter: 2014Q4

REPORT INFORMATION
  Report Type: Spontaneous
  Country: US (occurrence: None)
  Receive Date: 20141027
  Receipt Date: 20141027
  Transmission Date: 20150529
  Serious: No
  Sender: FDA-Public Use
  Company Number: None

PATIENT

DRUGS (1)
  1. SANCTURA [Suspect]
     Active Substance: TROSPIUM CHLORIDE
     Dosage: 20 PO QD
     Route: 048

REACTIONS (4)
  - Pollakiuria [None]
  - Pain [None]
  - Micturition urgency [None]
  - Drug ineffective [None]
